FAERS Safety Report 10420207 (Version 1)
Quarter: 2014Q3

REPORT INFORMATION
  Report Type: Spontaneous
  Country: US (occurrence: None)
  Receive Date: 20140701
  Receipt Date: 20140701
  Transmission Date: 20150326
  Serious: No
  Sender: FDA-Public Use
  Company Number: 1000067375

PATIENT
  Age: 85 Year
  Sex: Female

DRUGS (7)
  1. CLOPIDOGREL [Concomitant]
     Active Substance: CLOPIDOGREL BISULFATE
  2. ATORVASTATIN (ATORVASTATIN) (ATORVASTATIN) [Concomitant]
     Active Substance: ATORVASTATIN
  3. INSYNC (PROBIOTIC) (PROBIOTIC) [Concomitant]
  4. LISINOPRIL/HYDROCHLOROTHIAZIDE (LISINOPRIL, HYDROCHLOROTHIAZIDE) (LISINOPRIL, HYDROCHLOROTHIAZIDE)? [Concomitant]
  5. ATENOLOL (ATENOLOL) (ATENOLOL) [Concomitant]
     Active Substance: ATENOLOL
  6. LINZESS [Suspect]
     Active Substance: LINACLOTIDE
     Indication: CONSTIPATION
     Dosage: 290 MCG (290 MCG, 1 IN 1 D), ORAL
     Route: 048
     Dates: start: 201404, end: 201405
  7. ASPIRIN (ACETYLSALICYLIC ACID) (ACETYLSALICYLIC ACID) [Concomitant]
     Active Substance: ASPIRIN

REACTIONS (1)
  - Diarrhoea [None]

NARRATIVE: CASE EVENT DATE: 201404
